FAERS Safety Report 18015974 (Version 4)
Quarter: 2021Q2

REPORT INFORMATION
  Report Type: Spontaneous
  Country: AU (occurrence: AU)
  Receive Date: 20200713
  Receipt Date: 20210521
  Transmission Date: 20210717
  Serious: Yes (Other)
  Sender: FDA-Public Use
  Company Number: AU-PFIZER INC-2020261486

PATIENT
  Age: 53 Year
  Sex: Female
  Weight: 80 kg

DRUGS (15)
  1. RELPAX [Suspect]
     Active Substance: ELETRIPTAN HYDROBROMIDE
     Indication: HEADACHE
     Dosage: 40 MG, DAILY
     Dates: start: 20130405
  2. RELPAX [Suspect]
     Active Substance: ELETRIPTAN HYDROBROMIDE
     Dosage: 80 MG, 3X/DAY, AS NEEDED (WHEN VERY BAD MIGRAINE)
  3. PLAQUENIL [Concomitant]
     Active Substance: HYDROXYCHLOROQUINE SULFATE
     Dosage: 1 TWICE DAILY (MORNING AND NIGHT)
  4. METHOTREXATE. [Concomitant]
     Active Substance: METHOTREXATE
     Indication: PALINDROMIC RHEUMATISM
     Dosage: (2.5 MG OR 1ML INJECTION) ONCE WEEKLY/MONDAY
  5. PREDNISONE. [Concomitant]
     Active Substance: PREDNISONE
     Indication: PALINDROMIC RHEUMATISM
     Dosage: 4 MG, DAILY (STOPPED FOR SOME TIME AND STARTED AGAIN ON 06DEC)
  6. ACID FOLIC [Concomitant]
     Active Substance: FOLIC ACID
     Indication: PALINDROMIC RHEUMATISM
     Dosage: EXCEPT ON THE DAY WITH METHOTREXATE
  7. FEMARA [Concomitant]
     Active Substance: LETROZOLE
     Indication: BREAST CANCER
     Dosage: UNK
  8. RELPAX [Suspect]
     Active Substance: ELETRIPTAN HYDROBROMIDE
     Dosage: 80 MG(1 TABLET), DAILY
     Dates: start: 201601
  9. TAMOXIFEN [Concomitant]
     Active Substance: TAMOXIFEN
     Indication: BREAST CANCER
     Dosage: UNK
  10. RELPAX [Suspect]
     Active Substance: ELETRIPTAN HYDROBROMIDE
     Indication: MIGRAINE
     Dosage: 40 MG, 3?4 DAYS/WEEK
     Dates: start: 201410
  11. PLAQUENIL [Concomitant]
     Active Substance: HYDROXYCHLOROQUINE SULFATE
     Indication: PALINDROMIC RHEUMATISM
     Dosage: 200 MG, DAILY
     Dates: start: 20181206
  12. FISH OIL [Concomitant]
     Active Substance: FISH OIL
     Dosage: UNK
  13. ARAVA [Concomitant]
     Active Substance: LEFLUNOMIDE
     Indication: PALINDROMIC RHEUMATISM
     Dosage: 10 MG, 1X/DAY
     Dates: start: 20180215
  14. ACTONEL [Concomitant]
     Active Substance: RISEDRONATE SODIUM
     Indication: OSTEOPENIA
     Dosage: 150 MG, MONTHLY
     Dates: start: 201503
  15. Q10 [Concomitant]
     Active Substance: DIETARY SUPPLEMENT\UBIDECARENONE
     Dosage: UNK

REACTIONS (10)
  - Hypotension [Unknown]
  - Anxiety [Unknown]
  - Headache [Unknown]
  - Drug dependence [Unknown]
  - Hypertension [Unknown]
  - Depression [Unknown]
  - Blood pressure increased [Unknown]
  - Product complaint [Unknown]
  - Gastrooesophageal reflux disease [Unknown]
  - Medication overuse headache [Unknown]
